FAERS Safety Report 5470095-5 (Version None)
Quarter: 2007Q3

REPORT INFORMATION
  Report Type: 
  Country: None (occurrence: None)
  Receive Date: 20070927
  Receipt Date: 20061106
  Transmission Date: 20080115
  Serious: No
  Sender: FDA-Public Use
  Company Number: US-AMGEN-US199237

PATIENT
  Sex: Female

DRUGS (3)
  1. NEUPOGEN [Suspect]
     Indication: CHEMOTHERAPY
     Route: 058
     Dates: start: 20061106, end: 20061106
  2. ADRIAMYCIN PFS [Concomitant]
     Route: 065
  3. CYCLOPHOSPHAMIDE [Concomitant]
     Route: 065

REACTIONS (5)
  - ASTHMA [None]
  - CHEST PAIN [None]
  - DIZZINESS [None]
  - DYSPNOEA [None]
  - VOMITING [None]
